FAERS Safety Report 15666510 (Version 1)
Quarter: 2018Q4

REPORT INFORMATION
  Report Type: Spontaneous
  Country: US (occurrence: US)
  Receive Date: 20181128
  Receipt Date: 20181128
  Transmission Date: 20190205
  Serious: No
  Sender: FDA-Public Use
  Company Number: US-ROCHE-2100153

PATIENT
  Sex: Female

DRUGS (1)
  1. OCREVUS [Suspect]
     Active Substance: OCRELIZUMAB
     Indication: PRODUCT USED FOR UNKNOWN INDICATION
     Dosage: ONGOING: NO
     Route: 042

REACTIONS (5)
  - Muscle spasticity [Unknown]
  - Myalgia [Unknown]
  - Bone pain [Unknown]
  - Arthralgia [Unknown]
  - Asthenia [Unknown]
